FAERS Safety Report 13256601 (Version 1)
Quarter: 2017Q1

REPORT INFORMATION
  Report Type: Spontaneous
  Country: US (occurrence: US)
  Receive Date: 20170221
  Receipt Date: 20170221
  Transmission Date: 20170428
  Serious: No
  Sender: FDA-Public Use
  Company Number: ALCN2017US001456

PATIENT
  Age: 71 Year
  Sex: Male

DRUGS (3)
  1. DUREZOL [Suspect]
     Active Substance: DIFLUPREDNATE
     Indication: PRODUCT USED FOR UNKNOWN INDICATION
     Dosage: UNK UNK, TID
     Route: 047
  2. VIGAMOX [Suspect]
     Active Substance: MOXIFLOXACIN HYDROCHLORIDE
     Indication: PRODUCT USED FOR UNKNOWN INDICATION
     Dosage: UNK UNK, TID
     Route: 047
  3. PROLENSA [Suspect]
     Active Substance: BROMFENAC SODIUM
     Indication: PRODUCT USED FOR UNKNOWN INDICATION
     Dosage: UNK UNK, QD
     Route: 047

REACTIONS (3)
  - Hypermetropia [Recovered/Resolved]
  - Vision blurred [Recovered/Resolved]
  - Astigmatism [Recovered/Resolved]

NARRATIVE: CASE EVENT DATE: 20161027
